FAERS Safety Report 9515502 (Version 2)
Quarter: 2013Q3

REPORT INFORMATION
  Report Type: Spontaneous
  Country: PL (occurrence: PL)
  Receive Date: 20130911
  Receipt Date: 20130918
  Transmission Date: 20140515
  Serious: Yes (Hospitalization)
  Sender: FDA-Public Use
  Company Number: PHHY2013PL098825

PATIENT
  Age: 15 Year
  Sex: Male

DRUGS (6)
  1. CARBAMAZEPINE [Suspect]
     Route: 048
  2. HYDROXYZINE [Concomitant]
     Dosage: 25 MG, UNK
     Route: 048
  3. ATROPINE [Concomitant]
     Dosage: 0.4 MG, UNK
  4. FENTANYL [Concomitant]
     Dosage: 0.1 MG, UNK
  5. THIOPENTAL [Concomitant]
     Dosage: 325 MG, UNK
  6. CISATRACURIUM [Concomitant]
     Indication: EPILEPSY
     Dosage: 6 MG, UNK
     Route: 042

REACTIONS (3)
  - Myasthenia gravis crisis [Recovered/Resolved]
  - Head discomfort [Unknown]
  - Eyelid disorder [Unknown]
